FAERS Safety Report 4854082-3 (Version None)
Quarter: 2005Q4

REPORT INFORMATION
  Report Type: 
  Country: None (occurrence: None)
  Receive Date: 20051213
  Receipt Date: 20051129
  Transmission Date: 20060501
  Serious: Yes (Hospitalization)
  Sender: FDA-Public Use
  Company Number: 2005BI016269

PATIENT
  Age: 46 Year
  Sex: Female

DRUGS (9)
  1. AVONEX [Suspect]
     Indication: MULTIPLE SCLEROSIS
     Dosage: 30 UG; QW; IM
     Route: 030
     Dates: start: 19970101, end: 20040501
  2. AVONEX [Suspect]
     Indication: MULTIPLE SCLEROSIS
     Dosage: 30 UG; QW; IM
     Route: 030
     Dates: start: 20040101
  3. ROBAXIN [Concomitant]
  4. DETROL [Concomitant]
  5. NEURONTIN [Concomitant]
  6. MS CONTIN [Concomitant]
  7. VALIUM [Concomitant]
  8. AMBIEN [Concomitant]
  9. NOVANTRONE [Concomitant]

REACTIONS (3)
  - BRONCHOSPASM [None]
  - LUNG DISORDER [None]
  - MALAISE [None]
